FAERS Safety Report 16092195 (Version 2)
Quarter: 2019Q2

REPORT INFORMATION
  Report Type: Spontaneous
  Country: FR (occurrence: FR)
  Receive Date: 20190319
  Receipt Date: 20190405
  Transmission Date: 20190711
  Serious: Yes (Other)
  Sender: FDA-Public Use
  Company Number: FR-GILEAD-2019-0397095

PATIENT
  Age: 20 Year
  Sex: Female
  Weight: 75 kg

DRUGS (1)
  1. VIREAD [Suspect]
     Active Substance: TENOFOVIR DISOPROXIL FUMARATE
     Indication: HEPATITIS B
     Dosage: 245 MG, QD
     Route: 048
     Dates: start: 201708, end: 201709

REACTIONS (1)
  - Hyperemesis gravidarum [Recovered/Resolved]

NARRATIVE: CASE EVENT DATE: 201708
